FAERS Safety Report 22124251 (Version 1)
Quarter: 2023Q1

REPORT INFORMATION
  Report Type: Spontaneous
  Country: FR (occurrence: FR)
  Receive Date: 20230322
  Receipt Date: 20230322
  Transmission Date: 20230417
  Serious: Yes (Other)
  Sender: FDA-Public Use
  Company Number: None

PATIENT
  Age: 45 Year
  Sex: Male

DRUGS (1)
  1. DIMETHYL FUMARATE [Suspect]
     Active Substance: DIMETHYL FUMARATE
     Indication: Multiple sclerosis
     Dosage: 240 MILLIGRAM, BID
     Route: 048
     Dates: start: 20230127, end: 202302

REACTIONS (6)
  - Multiple sclerosis relapse [Recovering/Resolving]
  - Dysstasia [Recovering/Resolving]
  - Depression [Recovering/Resolving]
  - Headache [Recovering/Resolving]
  - Flushing [Recovering/Resolving]
  - Product substitution issue [Recovering/Resolving]

NARRATIVE: CASE EVENT DATE: 20230201
